FAERS Safety Report 10164936 (Version 1)
Quarter: 2014Q2

REPORT INFORMATION
  Report Type: Spontaneous
  Country: US (occurrence: US)
  Receive Date: 20140510
  Receipt Date: 20140510
  Transmission Date: 20141212
  Serious: No
  Sender: FDA-Public Use
  Company Number: US-BRISTOL-MYERS SQUIBB COMPANY-19594951

PATIENT
  Age: 58 Year
  Sex: Female
  Weight: 114.74 kg

DRUGS (6)
  1. BYETTA [Suspect]
     Indication: TYPE 2 DIABETES MELLITUS
     Dosage: INITIAL DOSE 5MCG THEN CHANGED TO 10MCG 0N 25SEP13
     Dates: start: 20130607, end: 20130925
  2. TELMISARTAN + HCTZ [Concomitant]
     Dosage: 1DF:80/25 UNIT NOS
  3. BYSTOLIC [Concomitant]
     Dosage: 1DF:10 UNIT NOS
  4. VITAMIN D [Concomitant]
  5. SYNTHROID [Concomitant]
     Dosage: 1DF:175+150 UNIT NOS
  6. PREDNISONE [Concomitant]

REACTIONS (3)
  - Blood glucose increased [Unknown]
  - Drug dose omission [Unknown]
  - Weight decreased [Unknown]
